FAERS Safety Report 4534527-9 (Version None)
Quarter: 2004Q4

REPORT INFORMATION
  Report Type: 
  Country: None (occurrence: None)
  Receive Date: 20041214
  Receipt Date: 20041023
  Transmission Date: 20050328
  Serious: No
  Sender: FDA-Public Use
  Company Number: 2004241013US

PATIENT
  Sex: Female
  Weight: 58 kg

DRUGS (7)
  1. BEXTRA [Suspect]
     Indication: ARTHRITIS
     Dosage: 10 MG, QD, ORAL
     Route: 048
     Dates: start: 20031001, end: 20041001
  2. BEXTRA [Suspect]
     Indication: ARTHRITIS
     Dosage: 10 MG, QD, ORAL
     Route: 048
     Dates: start: 20041022
  3. ZOCOR [Concomitant]
  4. ALTACE [Concomitant]
  5. TOPROL-XL [Concomitant]
  6. NORVASC [Concomitant]
  7. NEXIUM [Concomitant]

REACTIONS (7)
  - ASTHENIA [None]
  - FATIGUE [None]
  - GASTROOESOPHAGEAL REFLUX DISEASE [None]
  - HYPOKINESIA [None]
  - INFLUENZA LIKE ILLNESS [None]
  - NIGHTMARE [None]
  - PRURITUS [None]
